FAERS Safety Report 7852905-7 (Version None)
Quarter: 2011Q3

REPORT INFORMATION
  Report Type: 
  Country: None (occurrence: None)
  Receive Date: 20110914
  Receipt Date: 20101022
  Transmission Date: 20111222
  Serious: Yes (Other)
  Sender: FDA-Public Use
  Company Number: 1000016985

PATIENT
  Sex: Female

DRUGS (3)
  1. CELEXA [Suspect]
     Dosage: ORAL
     Route: 048
  2. ZOLOFT [Suspect]
     Dosage: 25 MG
  3. IRON (IRON) [Suspect]
     Dosage: INTRAVENOUS (NOT OTHERWISE SPECIFIED)
     Route: 042

REACTIONS (4)
  - ANXIETY [None]
  - SUICIDAL IDEATION [None]
  - DEPRESSION [None]
  - ANAPHYLACTIC REACTION [None]
